FAERS Safety Report 7089688-7 (Version None)
Quarter: 2010Q4

REPORT INFORMATION
  Report Type: 
  Country: None (occurrence: None)
  Receive Date: 20101108
  Receipt Date: 20101029
  Transmission Date: 20110411
  Serious: Yes (Hospitalization)
  Sender: FDA-Public Use
  Company Number: BE-ABBOTT-10P-013-0682131-00

PATIENT
  Sex: Male

DRUGS (1)
  1. LUCRIN DEPOT 11.25 MG [Suspect]
     Indication: PRODUCT USED FOR UNKNOWN INDICATION
     Dates: start: 20091012

REACTIONS (2)
  - FALL [None]
  - HIP FRACTURE [None]
